FAERS Safety Report 14321739 (Version 3)
Quarter: 2020Q2

REPORT INFORMATION
  Report Type: Spontaneous
  Country: GB (occurrence: GB)
  Receive Date: 20171224
  Receipt Date: 20200513
  Transmission Date: 20200713
  Serious: Yes (Hospitalization, Other)
  Sender: FDA-Public Use
  Company Number: PHHY2017GB191314

PATIENT
  Age: 42 Year
  Sex: Male

DRUGS (4)
  1. QUETIAPINE. [Suspect]
     Active Substance: QUETIAPINE
     Indication: SCHIZOPHRENIA
     Dosage: 350 MILLIGRAM
     Route: 065
  2. CLOZAPINE. [Suspect]
     Active Substance: CLOZAPINE
     Indication: SCHIZOPHRENIA
     Dosage: 300 MG
     Route: 065
  3. ARIPIPRAZOLE. [Suspect]
     Active Substance: ARIPIPRAZOLE
     Indication: SCHIZOPHRENIA
     Dosage: 15 MILLIGRAM, AT NIGHT
     Route: 065
  4. ARIPIPRAZOLE. [Suspect]
     Active Substance: ARIPIPRAZOLE
     Dosage: 30 MILLIGRAM, AT NIGHT
     Route: 065

REACTIONS (11)
  - Condition aggravated [Unknown]
  - Social avoidant behaviour [Unknown]
  - Hallucination [Unknown]
  - Neuroleptic malignant syndrome [Recovered/Resolved]
  - Drug ineffective [Unknown]
  - Blood creatine phosphokinase increased [Recovered/Resolved]
  - Muscle rigidity [Unknown]
  - Schizophrenia [Unknown]
  - Tardive dyskinesia [Unknown]
  - Catatonia [Recovered/Resolved]
  - Disturbance in attention [Unknown]
